FAERS Safety Report 9380699 (Version 1)
Quarter: 2013Q3

REPORT INFORMATION
  Report Type: Spontaneous
  Country: IN (occurrence: IN)
  Receive Date: 20130702
  Receipt Date: 20130702
  Transmission Date: 20140515
  Serious: Yes (Death, Other)
  Sender: FDA-Public Use
  Company Number: IN-BAXTER-2013BAX025262

PATIENT
  Age: 25 Year
  Sex: Male

DRUGS (7)
  1. ISOFLURANE USP (AERRANE) 100ML + 250ML GLASS BOTTLES - INHALATION ANAE [Suspect]
     Indication: GENERAL ANAESTHESIA
     Dosage: INITIAL CONCENTRATION
     Route: 055
  2. ISOFLURANE USP (AERRANE) 100ML + 250ML GLASS BOTTLES - INHALATION ANAE [Suspect]
     Dosage: INITIAL CONCENTRATION WAS INCREASED
     Route: 055
  3. FENTANYL [Suspect]
     Indication: GENERAL ANAESTHESIA
     Route: 042
  4. THIOPENTONE /00053401/ [Suspect]
     Indication: GENERAL ANAESTHESIA
     Route: 042
  5. NITROUS OXIDE [Suspect]
     Indication: ANAESTHESIA
     Route: 055
  6. VECURONIUM [Suspect]
     Indication: ENDOTRACHEAL INTUBATION
     Route: 065
  7. OXYGEN [Suspect]
     Indication: ANAESTHESIA
     Route: 055

REACTIONS (6)
  - Autonomic dysreflexia [Fatal]
  - Ventricular extrasystoles [Not Recovered/Not Resolved]
  - Malignant hypertension [Not Recovered/Not Resolved]
  - Bradycardia [Not Recovered/Not Resolved]
  - Cardiac arrest [None]
  - Cardiomegaly [None]
